FAERS Safety Report 19150682 (Version 1)
Quarter: 2021Q2

REPORT INFORMATION
  Report Type: Spontaneous
  Country: CA (occurrence: CA)
  Receive Date: 20210418
  Receipt Date: 20210418
  Transmission Date: 20210717
  Serious: Yes (Other)
  Sender: FDA-Public Use
  Company Number: CA-JNJFOC-20210429024

PATIENT
  Age: 20 Year
  Sex: Female
  Weight: 60 kg

DRUGS (2)
  1. REMICADE [Suspect]
     Active Substance: INFLIXIMAB
     Indication: CROHN^S DISEASE
     Route: 042
  2. MERCAPTOPURINE. [Concomitant]
     Active Substance: MERCAPTOPURINE
     Route: 065

REACTIONS (5)
  - Weight increased [Unknown]
  - Intentional product use issue [Unknown]
  - Rectal haemorrhage [Unknown]
  - Off label use [Unknown]
  - Sacroiliitis [Unknown]
